FAERS Safety Report 5897965-8 (Version None)
Quarter: 2008Q3

REPORT INFORMATION
  Report Type: 
  Country: None (occurrence: None)
  Receive Date: 20080925
  Receipt Date: 20080915
  Transmission Date: 20090109
  Serious: Yes (Other)
  Sender: FDA-Public Use
  Company Number: B0537524A

PATIENT
  Age: 61 Year
  Sex: Male

DRUGS (3)
  1. SERETIDE DISKUS [Suspect]
     Indication: ASTHMA
     Dosage: 1PUFF TWICE PER DAY
     Route: 055
     Dates: start: 20020101
  2. RHINOCORT [Concomitant]
     Route: 045
     Dates: start: 20040101, end: 20040101
  3. CORTICOIDS [Concomitant]
     Route: 048

REACTIONS (1)
  - OSTEONECROSIS [None]
